FAERS Safety Report 8306241-5 (Version None)
Quarter: 2012Q2

REPORT INFORMATION
  Report Type: 
  Country: None (occurrence: None)
  Receive Date: 20120423
  Receipt Date: 20120422
  Transmission Date: 20120825
  Serious: No
  Sender: FDA-Public Use
  Company Number: US-PFIZER INC-2012099328

PATIENT
  Sex: Female

DRUGS (2)
  1. CHANTIX [Suspect]
     Dosage: 0.5 MG, 1X/DAY
     Dates: start: 20120401
  2. CHANTIX [Suspect]
     Dosage: 1 MG, 2X/DAY
     Dates: end: 20120420

REACTIONS (3)
  - RASH GENERALISED [None]
  - SCRATCH [None]
  - PRURITUS [None]
